FAERS Safety Report 16932646 (Version 2)
Quarter: 2019Q4

REPORT INFORMATION
  Report Type: Spontaneous
  Country: US (occurrence: US)
  Receive Date: 20191018
  Receipt Date: 20191104
  Transmission Date: 20200122
  Serious: Yes (Hospitalization)
  Sender: FDA-Public Use
  Company Number: US-AUROBINDO-AUR-APL-2019-067537

PATIENT
  Age: 69 Year
  Sex: Male
  Weight: 87.45 kg

DRUGS (1)
  1. PIPERACILLIN+TAZOBACTAM INJECTION [Suspect]
     Active Substance: PIPERACILLIN SODIUM\TAZOBACTAM SODIUM
     Indication: VIRAL INFECTION
     Dosage: 10-OCT-2019 AND 11-OCT-2019 EVERY 12 HOURS (I.E., 02 DAYS FOR 04 TIMES)
     Route: 065
     Dates: start: 20191010, end: 20191012

REACTIONS (3)
  - Therapeutic response unexpected [Unknown]
  - Urine output increased [Not Recovered/Not Resolved]
  - Off label use [Unknown]

NARRATIVE: CASE EVENT DATE: 20191010
